FAERS Safety Report 9465148 (Version 2)
Quarter: 2013Q3

REPORT INFORMATION
  Report Type: Spontaneous
  Country: US (occurrence: US)
  Receive Date: 20130819
  Receipt Date: 20130819
  Transmission Date: 20140515
  Serious: Yes (Other)
  Sender: FDA-Public Use
  Company Number: US-CELGENEUS-163-50794-10091337

PATIENT
  Sex: 0

DRUGS (6)
  1. VIDAZA [Suspect]
     Indication: NEOPLASM
     Route: 065
  2. VALPROIC ACID [Suspect]
     Indication: NEOPLASM
     Route: 065
  3. VALPROIC ACID [Suspect]
     Route: 065
  4. VALPROIC ACID [Suspect]
     Route: 065
  5. CARBOPLATIN [Suspect]
     Indication: NEOPLASM
     Dosage: AUC 2.5
     Route: 065
  6. CARBOPLATIN [Suspect]
     Dosage: AUC 3.0
     Route: 065

REACTIONS (12)
  - Mental status changes [Unknown]
  - Neutropenia [Unknown]
  - Pyrexia [Unknown]
  - Anaemia [Unknown]
  - Thrombocytopenia [Unknown]
  - Somnolence [Unknown]
  - Dizziness [Unknown]
  - Hypotension [Unknown]
  - Nausea [Unknown]
  - Fatigue [Unknown]
  - Vomiting [Unknown]
  - Infection [Unknown]
